FAERS Safety Report 4367697-6 (Version None)
Quarter: 2004Q2

REPORT INFORMATION
  Report Type: 
  Country: None (occurrence: None)
  Receive Date: 20040526
  Receipt Date: 20040112
  Transmission Date: 20050107
  Serious: Yes (Hospitalization)
  Sender: FDA-Public Use
  Company Number: USA030844168

PATIENT
  Age: 44 Year
  Sex: Female
  Weight: 66 kg

DRUGS (3)
  1. ZYPREXA [Suspect]
     Indication: BIPOLAR DISORDER
     Dosage: 2.5 MG/DAY
     Dates: start: 19981001, end: 20031031
  2. AMBIEN [Concomitant]
  3. WELLBUTRIN [Concomitant]

REACTIONS (4)
  - MUSCLE CRAMP [None]
  - MUSCLE SPASMS [None]
  - MUSCLE TWITCHING [None]
  - SCHIZOPHRENIFORM DISORDER [None]
